FAERS Safety Report 13584418 (Version 1)
Quarter: 2017Q2

REPORT INFORMATION
  Report Type: Spontaneous
  Country: US (occurrence: US)
  Receive Date: 20170525
  Receipt Date: 20170525
  Transmission Date: 20170830
  Serious: Yes (Life-Threatening, Hospitalization, Disabling, Congenital Anomaly)
  Sender: FDA-Public Use
  Company Number: None

PATIENT
  Age: 32 Year
  Sex: Female
  Weight: 59.02 kg

DRUGS (1)
  1. MIRENA [Suspect]
     Active Substance: LEVONORGESTREL
     Indication: CONTRACEPTION
     Dates: start: 20130710, end: 20130729

REACTIONS (8)
  - Maternal exposure before pregnancy [None]
  - Premature delivery [None]
  - HELLP syndrome [None]
  - Uterine perforation [None]
  - Placenta accreta [None]
  - Caesarean section [None]
  - Pregnancy [None]
  - Complication associated with device [None]

NARRATIVE: CASE EVENT DATE: 20150605
